FAERS Safety Report 5027463-5 (Version None)
Quarter: 2006Q2

REPORT INFORMATION
  Report Type: 
  Country: None (occurrence: None)
  Receive Date: 20060501
  Receipt Date: 20060130
  Transmission Date: 20061013
  Serious: No
  Sender: FDA-Public Use
  Company Number: 200610591BWH

PATIENT
  Age: 65 Year
  Sex: Male

DRUGS (11)
  1. NEXAVAR [Suspect]
     Indication: RENAL CELL CARCINOMA STAGE UNSPECIFIED
     Dosage: 400 MG BID ORAL
     Route: 048
     Dates: start: 20060117
  2. IMDUR [Concomitant]
  3. TOPROL-XL [Concomitant]
  4. HYDRAZINE [Concomitant]
  5. FLORINEF [Concomitant]
  6. ASPRIN [Concomitant]
  7. VICODIN ES [Concomitant]
  8. GLYBURIDE [Concomitant]
  9. LANTUS [Concomitant]
  10. REGLAN [Concomitant]
  11. PROMETHAZINE HCL [Concomitant]

REACTIONS (4)
  - PAIN OF SKIN [None]
  - PARAESTHESIA [None]
  - RASH MACULO-PAPULAR [None]
  - TINEA CAPITIS [None]
